FAERS Safety Report 12676467 (Version 1)
Quarter: 2016Q3

REPORT INFORMATION
  Report Type: Spontaneous
  Country: US (occurrence: US)
  Receive Date: 20160823
  Receipt Date: 20160823
  Transmission Date: 20161109
  Serious: Yes (Other)
  Sender: FDA-Public Use
  Company Number: US-GLAXOSMITHKLINE-US2016121663

PATIENT
  Sex: Female

DRUGS (2)
  1. NICORETTE [Suspect]
     Active Substance: NICOTINE
     Indication: PRODUCT USED FOR UNKNOWN INDICATION
     Dosage: UNK
  2. NICODERM CQ [Suspect]
     Active Substance: NICOTINE
     Indication: PRODUCT USED FOR UNKNOWN INDICATION
     Dosage: UNK

REACTIONS (5)
  - Chronic obstructive pulmonary disease [Unknown]
  - Lung neoplasm malignant [Unknown]
  - Drug ineffective [Unknown]
  - Thrombosis [Unknown]
  - Lung neoplasm surgery [Unknown]

NARRATIVE: CASE EVENT DATE: 2006
